FAERS Safety Report 25522576 (Version 1)
Quarter: 2025Q3

REPORT INFORMATION
  Report Type: Spontaneous
  Country: EU (occurrence: EU)
  Receive Date: 20250707
  Receipt Date: 20250707
  Transmission Date: 20251020
  Serious: Yes (Hospitalization, Other)
  Sender: Atnahs Healthcare
  Company Number: None

PATIENT
  Age: 76 Year
  Sex: Female

DRUGS (1)
  1. KETOROLAC [Suspect]
     Active Substance: KETOROLAC TROMETHAMINE
     Indication: Osteoarthritis
     Route: 030

REACTIONS (7)
  - Injection site haemorrhage [Recovering/Resolving]
  - Injection site necrosis [Recovering/Resolving]
  - Embolia cutis medicamentosa [Unknown]
  - Plastic surgery [Recovering/Resolving]
  - Injection site pain [Unknown]
  - Injection site induration [Unknown]
  - Injection site pallor [Unknown]
